FAERS Safety Report 16749555 (Version 1)
Quarter: 2019Q3

REPORT INFORMATION
  Report Type: Spontaneous
  Country: IT (occurrence: IT)
  Receive Date: 20190828
  Receipt Date: 20190828
  Transmission Date: 20191005
  Serious: Yes (Hospitalization, Other)
  Sender: FDA-Public Use
  Company Number: IT-ALEMBIC PHARMACUETICALS LIMITED-2019SCAL000580

PATIENT

DRUGS (3)
  1. ALPRAZOLAM. [Concomitant]
     Active Substance: ALPRAZOLAM
     Indication: PRODUCT USED FOR UNKNOWN INDICATION
     Dosage: 0.25 MILLIGRAM
  2. TOPIRAMATE. [Suspect]
     Active Substance: TOPIRAMATE
     Indication: SYNCOPE
     Dosage: 100 MILLIGRAM, BID
  3. FLUOXETINE HYDROCHLORIDE. [Suspect]
     Active Substance: FLUOXETINE HYDROCHLORIDE
     Indication: PRODUCT USED FOR UNKNOWN INDICATION
     Dosage: 25 MILLIGRAM

REACTIONS (4)
  - Postictal state [Unknown]
  - Syncope [Unknown]
  - Brugada syndrome [Unknown]
  - Urinary incontinence [Unknown]
